FAERS Safety Report 20003242 (Version 2)
Quarter: 2022Q1

REPORT INFORMATION
  Report Type: Spontaneous
  Country: IN (occurrence: IN)
  Receive Date: 20211027
  Receipt Date: 20220201
  Transmission Date: 20220424
  Serious: Yes (Hospitalization)
  Sender: FDA-Public Use
  Company Number: IN-PFIZER INC-2021873264

PATIENT
  Age: 72 Year
  Sex: Male

DRUGS (1)
  1. CRIZOTINIB [Suspect]
     Active Substance: CRIZOTINIB
     Indication: Lung cancer metastatic
     Dosage: 250 MG, 2X/DAY
     Route: 048
     Dates: start: 20210709

REACTIONS (5)
  - Erythema [Unknown]
  - Oedema peripheral [Unknown]
  - Cough [Unknown]
  - Dyspnoea exertional [Unknown]
  - Neoplasm progression [Unknown]
